FAERS Safety Report 14897312 (Version 1)
Quarter: 2018Q2

REPORT INFORMATION
  Report Type: Spontaneous
  Country: US (occurrence: US)
  Receive Date: 20180427
  Receipt Date: 20180427
  Transmission Date: 20180711
  Serious: Yes (Hospitalization)
  Sender: FDA-Public Use
  Company Number: None

PATIENT
  Age: 59 Year
  Sex: Female

DRUGS (2)
  1. SUTENT [Suspect]
     Active Substance: SUNITINIB MALATE
     Indication: RENAL CANCER
     Dosage: 50MG DAILY FOR 4 WEEKS ON  ?FOLLOWED BY 2 WEEKS OFF  ORAL
     Route: 048
     Dates: start: 20180406
  2. LIDOCAINE PATCHES [Concomitant]
     Active Substance: LIDOCAINE

REACTIONS (1)
  - Orthopaedic procedure [None]

NARRATIVE: CASE EVENT DATE: 20180423
